FAERS Safety Report 5903128-X (Version None)
Quarter: 2008Q3

REPORT INFORMATION
  Report Type: 
  Country: None (occurrence: None)
  Receive Date: 20080930
  Receipt Date: 20080926
  Transmission Date: 20090109
  Serious: Yes (Death, Hospitalization)
  Sender: FDA-Public Use
  Company Number: PHHO2008SE05719

PATIENT
  Sex: Male
  Weight: 67 kg

DRUGS (4)
  1. SANDIMMUNE [Suspect]
     Indication: HEART TRANSPLANT
     Dosage: 100 MG
     Route: 048
     Dates: start: 19960101
  2. NO TREATMENT RECEIVED NOMED [Suspect]
     Indication: HEART TRANSPLANT
  3. CELLCEPT [Suspect]
     Indication: HEART TRANSPLANT
     Dosage: 3 G
     Route: 048
  4. PREDNISOLON [Suspect]
     Indication: HEART TRANSPLANT
     Dosage: 7.5 MG
     Route: 048
     Dates: start: 19960101

REACTIONS (14)
  - ARTERIAL STENT INSERTION [None]
  - ERYSIPELAS [None]
  - GENERAL PHYSICAL HEALTH DETERIORATION [None]
  - IMPAIRED HEALING [None]
  - LEG AMPUTATION [None]
  - MULTI-ORGAN FAILURE [None]
  - PAIN [None]
  - PSEUDOMONAS INFECTION [None]
  - PYREXIA [None]
  - SEPSIS [None]
  - WOUND [None]
  - WOUND COMPLICATION [None]
  - WOUND INFECTION STAPHYLOCOCCAL [None]
  - WOUND NECROSIS [None]
